FAERS Safety Report 13520842 (Version 2)
Quarter: 2017Q2

REPORT INFORMATION
  Report Type: Report from Study
  Country: US (occurrence: US)
  Receive Date: 20170508
  Receipt Date: 20170519
  Transmission Date: 20170830
  Serious: Yes (Other)
  Sender: FDA-Public Use
  Company Number: US-SUN PHARMACEUTICAL INDUSTRIES LTD-2017US-139882

PATIENT
  Age: 43 Year
  Sex: Male

DRUGS (24)
  1. CLOZAPINE. [Suspect]
     Active Substance: CLOZAPINE
     Indication: SCHIZOAFFECTIVE DISORDER BIPOLAR TYPE
     Dosage: UNK
     Route: 065
     Dates: start: 20170407
  2. CLOZAPINE. [Suspect]
     Active Substance: CLOZAPINE
     Indication: SCHIZOAFFECTIVE DISORDER BIPOLAR TYPE
     Dosage: 225 MG, BID
     Dates: start: 20170224, end: 20170410
  3. CLOZAPINE. [Suspect]
     Active Substance: CLOZAPINE
     Indication: ANTISOCIAL PERSONALITY DISORDER
  4. CLOZAPINE. [Suspect]
     Active Substance: CLOZAPINE
     Indication: SCHIZOAFFECTIVE DISORDER BIPOLAR TYPE
     Dosage: UNK
     Route: 065
     Dates: start: 20170407
  5. CLOZAPINE. [Suspect]
     Active Substance: CLOZAPINE
     Indication: ANTISOCIAL PERSONALITY DISORDER
  6. VITAMIN E [Concomitant]
     Active Substance: .ALPHA.-TOCOPHEROL
     Indication: PRODUCT USED FOR UNKNOWN INDICATION
     Dosage: 400 U, BID
     Route: 048
  7. OMEGA 3 FATTY ACID [Concomitant]
     Active Substance: OMEGA-3 FATTY ACIDS
     Indication: PRODUCT USED FOR UNKNOWN INDICATION
     Dosage: 1000 MG, QD
     Route: 048
  8. DEPAKOTE [Concomitant]
     Active Substance: DIVALPROEX SODIUM
     Indication: PRODUCT USED FOR UNKNOWN INDICATION
     Dosage: 1000 MG, BID
  9. LEVOTHYROXINE. [Concomitant]
     Active Substance: LEVOTHYROXINE
     Indication: PRODUCT USED FOR UNKNOWN INDICATION
     Dosage: 75 ?G, DAILY
     Route: 065
  10. CLOZAPINE. [Suspect]
     Active Substance: CLOZAPINE
     Indication: ANTISOCIAL PERSONALITY DISORDER
  11. MV1 [Concomitant]
     Indication: PRODUCT USED FOR UNKNOWN INDICATION
     Dosage: 1 DF, DAILY
     Route: 048
  12. METAMUCIL [Concomitant]
     Active Substance: PLANTAGO SEED
     Indication: PRODUCT USED FOR UNKNOWN INDICATION
     Dosage: 1 DF, BID (PER 24 WITH WATER)
     Route: 065
  13. CLOZAPINE. [Suspect]
     Active Substance: CLOZAPINE
     Indication: SCHIZOAFFECTIVE DISORDER BIPOLAR TYPE
     Dosage: 25 MG, BID
     Route: 065
     Dates: start: 20170426
  14. DSS [Concomitant]
     Active Substance: DEXTRAN SULFATE SODIUM SALT
     Indication: PRODUCT USED FOR UNKNOWN INDICATION
     Dosage: 250 MG, QD (AS PER NEED)
     Route: 048
  15. CLOZAPINE. [Suspect]
     Active Substance: CLOZAPINE
     Indication: ANTISOCIAL PERSONALITY DISORDER
  16. CALCIUM CO3 [Concomitant]
     Indication: PRODUCT USED FOR UNKNOWN INDICATION
     Dosage: 500 MG, DAILY
     Route: 065
  17. VITAMIN D3 [Concomitant]
     Active Substance: CHOLECALCIFEROL
     Indication: PRODUCT USED FOR UNKNOWN INDICATION
     Dosage: 400 IU, BID
     Route: 065
  18. CLOZAPINE. [Suspect]
     Active Substance: CLOZAPINE
     Indication: SCHIZOAFFECTIVE DISORDER BIPOLAR TYPE
     Dosage: UNK
     Route: 065
     Dates: start: 20170407
  19. METFORMIN [Concomitant]
     Active Substance: METFORMIN HYDROCHLORIDE
     Indication: PRODUCT USED FOR UNKNOWN INDICATION
     Dosage: 500 MG, QD
     Route: 048
  20. CLOZAPINE. [Suspect]
     Active Substance: CLOZAPINE
     Indication: ANTISOCIAL PERSONALITY DISORDER
  21. INVEGA SUSTENNA [Concomitant]
     Active Substance: PALIPERIDONE PALMITATE
     Indication: PRODUCT USED FOR UNKNOWN INDICATION
     Dosage: 234 MG, QD (28 DAYS)
     Route: 030
  22. TRAZODONE [Concomitant]
     Active Substance: TRAZODONE HYDROCHLORIDE
     Indication: PRODUCT USED FOR UNKNOWN INDICATION
     Dosage: 200 MG, QD (AT NIGHT)
     Route: 048
  23. VITAMIN C [Concomitant]
     Active Substance: ASCORBIC ACID
     Indication: PRODUCT USED FOR UNKNOWN INDICATION
     Dosage: 500 MG, BID
     Route: 065
  24. VITAMIN B12 [Concomitant]
     Active Substance: CYANOCOBALAMIN
     Indication: PRODUCT USED FOR UNKNOWN INDICATION
     Dosage: 100 ?G, DAILY
     Route: 065

REACTIONS (4)
  - Neutrophil count increased [Recovered/Resolved]
  - Asthenia [Unknown]
  - Diarrhoea [Unknown]
  - Gait disturbance [Unknown]

NARRATIVE: CASE EVENT DATE: 20170329
